FAERS Safety Report 6565691-8 (Version None)
Quarter: 2010Q1

REPORT INFORMATION
  Report Type: 
  Country: None (occurrence: None)
  Receive Date: 20100201
  Receipt Date: 20100123
  Transmission Date: 20100710
  Serious: Yes (Hospitalization, Other)
  Sender: FDA-Public Use
  Company Number: FI-ABBOTT-08P-055-0453079-00

PATIENT
  Sex: Male

DRUGS (8)
  1. HUMIRA [Suspect]
     Indication: RHEUMATOID ARTHRITIS
     Route: 058
     Dates: start: 20080218, end: 20080425
  2. ARAVA [Concomitant]
     Indication: RHEUMATOID ARTHRITIS
     Route: 048
     Dates: start: 20050301, end: 20080509
  3. ARAVA [Concomitant]
     Dates: start: 20080601
  4. TREXAN [Concomitant]
     Indication: RHEUMATOID ARTHRITIS
     Route: 048
     Dates: end: 20080509
  5. OXIKLORIN [Concomitant]
     Indication: RHEUMATOID ARTHRITIS
     Dosage: 300MG/NR
     Route: 048
     Dates: end: 20080509
  6. OXIKLORIN [Concomitant]
     Dates: start: 20080601
  7. PREDNISON [Concomitant]
     Indication: RHEUMATOID ARTHRITIS
     Route: 048
  8. ACID FOLIC [Concomitant]
     Indication: RHEUMATOID ARTHRITIS
     Route: 048

REACTIONS (2)
  - GUILLAIN-BARRE SYNDROME [None]
  - NERVE ROOT LESION [None]
